FAERS Safety Report 13759505 (Version 2)
Quarter: 2017Q3

REPORT INFORMATION
  Report Type: Spontaneous
  Country: KR (occurrence: KR)
  Receive Date: 20170717
  Receipt Date: 20170912
  Transmission Date: 20171127
  Serious: Yes (Other)
  Sender: FDA-Public Use
  Company Number: KR-009507513-1501KOR003667

PATIENT
  Age: 72 Year
  Sex: Male
  Weight: 59.6 kg

DRUGS (16)
  1. FLUOROURACIL. [Concomitant]
     Active Substance: FLUOROURACIL
     Indication: CHEMOTHERAPY
     Dosage: 402.5 MG, QD; 4DAYS TOTAL DOSE: 1610MG, STRENGTH: 1000MG/20 ML
     Route: 042
     Dates: start: 20141223, end: 20141226
  2. ULTRACET [Concomitant]
     Active Substance: ACETAMINOPHEN\TRAMADOL HYDROCHLORIDE
     Dosage: 1 DF, TID
     Route: 048
     Dates: start: 20141226, end: 20141226
  3. HARMONILAN [Concomitant]
     Indication: DYSPHAGIA
     Dosage: 200 MG, QD
     Route: 048
     Dates: start: 20141209, end: 20141218
  4. MANNITOL. [Concomitant]
     Active Substance: MANNITOL
     Indication: PROPHYLAXIS
     Dosage: 250 ML, QD
     Route: 042
     Dates: start: 20141223, end: 20141223
  5. ULTRACET [Concomitant]
     Active Substance: ACETAMINOPHEN\TRAMADOL HYDROCHLORIDE
     Indication: ABDOMINAL PAIN
     Dosage: 1 DF, BID
     Route: 048
     Dates: start: 20141222, end: 20141225
  6. MOTILITONE [Concomitant]
     Active Substance: HERBALS
     Indication: PROPHYLAXIS
     Dosage: 30 MG, TID
     Route: 048
     Dates: start: 20141222
  7. LAMINA G [Concomitant]
     Active Substance: SODIUM ALGINATE
     Indication: DYSPHAGIA
     Dosage: 20 ML, QID
     Route: 048
     Dates: start: 20141208
  8. EMEND (FOSAPREPITANT DIMEGLUMINE) [Suspect]
     Active Substance: FOSAPREPITANT DIMEGLUMINE
     Indication: PROPHYLAXIS OF NAUSEA AND VOMITING
     Dosage: 150 MG, ONCE
     Route: 042
     Dates: start: 20141223, end: 20141223
  9. RABIET [Concomitant]
     Indication: OESOPHAGITIS
  10. ALOXI [Concomitant]
     Active Substance: PALONOSETRON HYDROCHLORIDE
     Indication: PREMEDICATION
     Dosage: 0.25 MG, QD
     Route: 042
     Dates: start: 20141223, end: 20141223
  11. CHLORPHENIRAMINE MALEATE. [Concomitant]
     Active Substance: CHLORPHENIRAMINE MALEATE
     Indication: PROPHYLAXIS
     Dosage: 4 MG, QD
     Route: 042
     Dates: start: 20141223, end: 20141226
  12. CHLORPHENIRAMINE MALEATE. [Concomitant]
     Active Substance: CHLORPHENIRAMINE MALEATE
     Indication: PROPHYLAXIS
  13. PLATOSIN [Concomitant]
     Active Substance: CISPLATIN
     Indication: CHEMOTHERAPY
     Dosage: 120.75 MG, ONCE, STRENGTH: 0.1 %, 50 ML
     Route: 042
     Dates: start: 20141223, end: 20141223
  14. ULTRACET [Concomitant]
     Active Substance: ACETAMINOPHEN\TRAMADOL HYDROCHLORIDE
     Dosage: 1 DF, BID
     Route: 048
     Dates: start: 20141227
  15. RABIET [Concomitant]
     Indication: GASTRITIS
     Dosage: 10 MG, QD
     Route: 048
     Dates: start: 20141128
  16. DEXAMETHASONE SODIUM PHOSPHATE. [Concomitant]
     Active Substance: DEXAMETHASONE SODIUM PHOSPHATE
     Indication: PREMEDICATION
     Dosage: 10 MG, QD, STRENGTH:5 MG/ML
     Route: 042
     Dates: start: 20141223, end: 20141225

REACTIONS (4)
  - Cold sweat [Recovered/Resolved]
  - Platelet count decreased [Not Recovered/Not Resolved]
  - Gastric ulcer [Not Recovered/Not Resolved]
  - Nausea [Recovered/Resolved]

NARRATIVE: CASE EVENT DATE: 20141223
